FAERS Safety Report 5500732-8 (Version None)
Quarter: 2007Q4

REPORT INFORMATION
  Report Type: 
  Country: None (occurrence: None)
  Receive Date: 20071029
  Receipt Date: 20071018
  Transmission Date: 20080405
  Serious: Yes (Hospitalization)
  Sender: FDA-Public Use
  Company Number: FR-ASTRAZENECA-2007CG00862

PATIENT
  Age: 25363 Day
  Sex: Male

DRUGS (12)
  1. DIPRIVAN [Suspect]
     Route: 042
     Dates: start: 20070515, end: 20070515
  2. TRACRIUM [Suspect]
     Dates: start: 20070515, end: 20070515
  3. FENTANYL CITRATE [Suspect]
     Route: 042
     Dates: start: 20070515, end: 20070515
  4. PERFALGAN [Suspect]
     Route: 042
     Dates: start: 20070515, end: 20070515
  5. CEFAZOLIN SODIUM [Suspect]
     Route: 042
     Dates: start: 20070515, end: 20070516
  6. SEVORANE [Suspect]
     Route: 055
     Dates: start: 20070515, end: 20070515
  7. AMLOR [Concomitant]
  8. LIPANTHYL [Concomitant]
  9. OMIX [Concomitant]
  10. LOSARTAN POTASSIUM AND HYDROCHLOROTHIAZIDE [Concomitant]
  11. ADVIL [Concomitant]
  12. CELEBREX [Concomitant]

REACTIONS (2)
  - PROTHROMBIN LEVEL DECREASED [None]
  - TRANSAMINASES INCREASED [None]
